FAERS Safety Report 8375453-7 (Version None)
Quarter: 2012Q2

REPORT INFORMATION
  Report Type: 
  Country: None (occurrence: None)
  Receive Date: 20120522
  Receipt Date: 20120517
  Transmission Date: 20120825
  Serious: No
  Sender: FDA-Public Use
  Company Number: US-BIOGENIDEC-2012BI017503

PATIENT
  Sex: Female

DRUGS (2)
  1. TYSABRI [Suspect]
     Indication: MULTIPLE SCLEROSIS
     Route: 042
     Dates: start: 20070503, end: 20100519
  2. TYSABRI [Suspect]
     Route: 042
     Dates: start: 20120508

REACTIONS (5)
  - FATIGUE [None]
  - SECONDARY PROGRESSIVE MULTIPLE SCLEROSIS [None]
  - INJECTION SITE SCAR [None]
  - NEURALGIA [None]
  - HEPATIC ENZYME INCREASED [None]
